FAERS Safety Report 5907771-3 (Version None)
Quarter: 2008Q3

REPORT INFORMATION
  Report Type: 
  Country: None (occurrence: None)
  Receive Date: 20080929
  Receipt Date: 20080917
  Transmission Date: 20090109
  Serious: Yes (Other)
  Sender: FDA-Public Use
  Company Number: 08-001506

PATIENT
  Age: 17 Year
  Sex: Female

DRUGS (1)
  1. DORYX [Suspect]
     Dosage: 100 MG BID UNK
     Dates: start: 20070101

REACTIONS (1)
  - GASTROOESOPHAGEAL REFLUX DISEASE [None]
